FAERS Safety Report 18644564 (Version 1)
Quarter: 2020Q4

REPORT INFORMATION
  Report Type: Spontaneous
  Country: ES (occurrence: ES)
  Receive Date: 20201221
  Receipt Date: 20201221
  Transmission Date: 20210114
  Serious: Yes (Life-Threatening, Hospitalization)
  Sender: FDA-Public Use
  Company Number: ES-MYLANLABS-2020M1103845

PATIENT
  Age: 60 Year
  Sex: Male

DRUGS (3)
  1. CASPOFUNGIN [Suspect]
     Active Substance: CASPOFUNGIN
     Indication: INFECTION PROPHYLAXIS
     Dosage: 70 MILLIGRAM, QD
     Route: 042
     Dates: start: 20200826, end: 20201026
  2. LEVOFLOXACIN. [Suspect]
     Active Substance: LEVOFLOXACIN
     Indication: INFECTION PROPHYLAXIS
     Dosage: 500 MILLIGRAM, BID
     Route: 042
     Dates: start: 20201009, end: 20201024
  3. LINEZOLID. [Suspect]
     Active Substance: LINEZOLID
     Indication: INFECTION PROPHYLAXIS
     Dosage: 60 MILLIGRAM, BID
     Route: 042
     Dates: start: 20201007, end: 20201024

REACTIONS (2)
  - Pancytopenia [Recovered/Resolved]
  - Hepatitis cholestatic [Recovered/Resolved]

NARRATIVE: CASE EVENT DATE: 20201021
